FAERS Safety Report 13288890 (Version 1)
Quarter: 2017Q1

REPORT INFORMATION
  Report Type: Spontaneous
  Country: US (occurrence: US)
  Receive Date: 20170302
  Receipt Date: 20170302
  Transmission Date: 20170428
  Serious: No
  Sender: FDA-Public Use
  Company Number: US-ASTRAZENECA-2017SE20416

PATIENT
  Sex: Female

DRUGS (1)
  1. SYMBICORT [Suspect]
     Active Substance: BUDESONIDE\FORMOTEROL FUMARATE DIHYDRATE
     Route: 055

REACTIONS (8)
  - Weight increased [Unknown]
  - Weight loss poor [Unknown]
  - Exercise tolerance decreased [Unknown]
  - Abasia [Unknown]
  - Fatigue [Unknown]
  - Psychiatric symptom [Unknown]
  - Dyspnoea [Unknown]
  - Oxygen supplementation [Unknown]
